FAERS Safety Report 13141881 (Version 1)
Quarter: 2017Q1

REPORT INFORMATION
  Report Type: Spontaneous
  Country: BR (occurrence: BR)
  Receive Date: 20170124
  Receipt Date: 20170124
  Transmission Date: 20170428
  Serious: Yes (Other)
  Sender: FDA-Public Use
  Company Number: BR-PFIZER INC-2017021278

PATIENT
  Age: 80 Year
  Sex: Male
  Weight: 75 kg

DRUGS (3)
  1. XALATAN [Suspect]
     Active Substance: LATANOPROST
     Indication: INTRAOCULAR PRESSURE INCREASED
     Dosage: 3 UG (1 DROP IN EACH EYE), 1X/DAY
     Route: 047
     Dates: start: 2013
  2. XALATAN [Suspect]
     Active Substance: LATANOPROST
     Dosage: 3 UG, ALTERNATE DAY
  3. AZOPT [Concomitant]
     Active Substance: BRINZOLAMIDE
     Indication: INTRAOCULAR PRESSURE INCREASED
     Dosage: TWICE DAILY IN BOTH EYES
     Route: 047
     Dates: start: 2016

REACTIONS (3)
  - Deafness [Unknown]
  - Infarction [Unknown]
  - Intentional product misuse [Unknown]

NARRATIVE: CASE EVENT DATE: 201603
